FAERS Safety Report 7799863-1 (Version None)
Quarter: 2011Q4

REPORT INFORMATION
  Report Type: 
  Country: None (occurrence: None)
  Receive Date: 20111006
  Receipt Date: 20110928
  Transmission Date: 20120403
  Serious: Yes (Other)
  Sender: FDA-Public Use
  Company Number: JP-B.I. PHARMACEUTICALS,INC./RIDGEFIELD-2011-BP-16618NB

PATIENT
  Sex: Male
  Weight: 66.7 kg

DRUGS (16)
  1. VALSARTAN  AND HYDROCHLOROTHIAZIDE [Concomitant]
     Indication: HYPERTENSION
     Route: 048
     Dates: start: 20100827, end: 20110623
  2. KREMEZIN [Concomitant]
     Route: 065
  3. AMIODARONE HCL [Concomitant]
     Indication: ARRHYTHMIA
     Dosage: 100 MG
     Route: 048
     Dates: start: 20110218
  4. PRADAXA [Suspect]
     Indication: ATRIAL FIBRILLATION
     Dosage: 150 MG
     Route: 048
     Dates: start: 20110513, end: 20110623
  5. ZETIA [Concomitant]
     Indication: LIPIDS ABNORMAL
     Dosage: 10 MG
     Route: 048
     Dates: start: 20090629
  6. THEO-DUR [Concomitant]
     Indication: ASTHMA
     Dosage: 400 MG
     Route: 065
     Dates: start: 20080212
  7. CRESTOR [Concomitant]
     Indication: LIPIDS ABNORMAL
     Dosage: 10 MG
     Route: 048
     Dates: start: 20090108
  8. BROMANOME [Concomitant]
     Route: 065
  9. CILOSTAZOL [Suspect]
     Indication: ANTIPLATELET THERAPY
     Dosage: 100 MG
     Route: 048
     Dates: start: 20110513, end: 20110623
  10. SITAGLIPTIN PHOSPHATE [Concomitant]
     Route: 065
  11. PERINDOPRIL ERBUMINE [Concomitant]
     Indication: HYPERTENSION
     Dosage: 8 MG
     Route: 048
  12. CALBLOCK [Concomitant]
     Indication: HYPERTENSION
     Dosage: 16 MG
     Route: 048
  13. BISOPROLOL FUMARATE [Concomitant]
     Indication: HYPERTENSION
     Dosage: 10 MG
     Route: 048
     Dates: start: 20080616
  14. LASIX [Concomitant]
     Indication: CARDIAC FAILURE
     Dosage: 20 MG
     Route: 048
     Dates: start: 20080615, end: 20110623
  15. ZOLPIDEM [Concomitant]
     Indication: INSOMNIA
     Dosage: 10 MG
     Route: 048
     Dates: start: 20070602
  16. MIGLITOL [Concomitant]
     Indication: DIABETES MELLITUS
     Dosage: 75 MG
     Route: 048
     Dates: start: 20100409

REACTIONS (1)
  - RENAL IMPAIRMENT [None]
